FAERS Safety Report 14101043 (Version 5)
Quarter: 2017Q4

REPORT INFORMATION
  Report Type: Spontaneous
  Country: US (occurrence: US)
  Receive Date: 20171018
  Receipt Date: 20171129
  Transmission Date: 20180321
  Serious: Yes (Life-Threatening, Hospitalization, Other)
  Sender: FDA-Public Use
  Company Number: US-BEH-2017084366

PATIENT
  Age: 51 Year
  Sex: Male
  Weight: 65.76 kg

DRUGS (41)
  1. VITAMIN B12 [Concomitant]
     Active Substance: CYANOCOBALAMIN
  2. AZITHROMYCIN ANHYDROUS. [Concomitant]
     Active Substance: AZITHROMYCIN ANHYDROUS
  3. OXYGEN. [Concomitant]
     Active Substance: OXYGEN
  4. BACTRIM [Concomitant]
     Active Substance: SULFAMETHOXAZOLE\TRIMETHOPRIM
  5. DALIRESP [Concomitant]
     Active Substance: ROFLUMILAST
  6. IBUPROFEN. [Concomitant]
     Active Substance: IBUPROFEN
  7. HEPARIN [Concomitant]
     Active Substance: HEPARIN SODIUM
  8. DIPHENHYDRAMINE. [Concomitant]
     Active Substance: DIPHENHYDRAMINE
  9. GABAPENTIN. [Concomitant]
     Active Substance: GABAPENTIN
  10. XOPENEX [Concomitant]
     Active Substance: LEVALBUTEROL HYDROCHLORIDE
  11. ZEMAIRA [Suspect]
     Active Substance: .ALPHA.1-PROTEINASE INHIBITOR HUMAN
     Indication: ALPHA-1 ANTI-TRYPSIN DEFICIENCY
     Dosage: 60 MG/KG, QW
     Route: 042
     Dates: start: 20160113
  12. ZEMAIRA [Suspect]
     Active Substance: .ALPHA.1-PROTEINASE INHIBITOR HUMAN
     Dosage: UNK
     Route: 042
  13. CASPOFUNGIN ACETATE. [Concomitant]
     Active Substance: CASPOFUNGIN ACETATE
  14. TRAMADOL. [Concomitant]
     Active Substance: TRAMADOL
  15. VITAMIN B6 [Concomitant]
     Active Substance: PYRIDOXINE HYDROCHLORIDE
  16. VITAMIN D3 [Concomitant]
     Active Substance: CHOLECALCIFEROL
  17. ZEMAIRA [Suspect]
     Active Substance: .ALPHA.1-PROTEINASE INHIBITOR HUMAN
     Dosage: UNK
     Route: 042
  18. TESSALON [Concomitant]
     Active Substance: BENZONATATE
  19. DELSYM [Concomitant]
     Active Substance: DEXTROMETHORPHAN
  20. PANTOPRAZOLE [Concomitant]
     Active Substance: PANTOPRAZOLE
  21. PROBIOTIC                          /06395501/ [Concomitant]
     Active Substance: BIFIDOBACTERIUM ANIMALIS LACTIS
  22. CATHFLO ACTIVASE [Concomitant]
     Active Substance: ALTEPLASE
  23. FLUTICASONE FUROATE [Concomitant]
     Active Substance: FLUTICASONE FUROATE
  24. SODIUM CHLORIDE. [Concomitant]
     Active Substance: SODIUM CHLORIDE
  25. EPIPEN [Concomitant]
     Active Substance: EPINEPHRINE
  26. ZEMAIRA [Suspect]
     Active Substance: .ALPHA.1-PROTEINASE INHIBITOR HUMAN
     Dosage: UNK
     Route: 042
  27. HYDROCODONE BIT. AND HOMATROPINE METH. [Concomitant]
  28. MORPHINE SULFATE. [Concomitant]
     Active Substance: MORPHINE SULFATE
  29. PREDNISONE. [Concomitant]
     Active Substance: PREDNISONE
  30. ALBUTEROL                          /00139501/ [Concomitant]
     Active Substance: ALBUTEROL
  31. AVELOX [Concomitant]
     Active Substance: MOXIFLOXACIN HYDROCHLORIDE
  32. ISAVUCONAZOLE [Concomitant]
     Active Substance: ISAVUCONAZOLE
  33. REMERON [Concomitant]
     Active Substance: MIRTAZAPINE
  34. ONDANSETRON [Concomitant]
     Active Substance: ONDANSETRON
  35. AMIKACIN SULFATE. [Concomitant]
     Active Substance: AMIKACIN SULFATE
  36. CLOFAZIMINE [Concomitant]
     Active Substance: CLOFAZIMINE
  37. RIFABUTIN. [Concomitant]
     Active Substance: RIFABUTIN
  38. FISH OIL W/VITAMIN D NOS [Concomitant]
  39. STERILE WATER [Concomitant]
     Active Substance: WATER
  40. SPIRIVA [Concomitant]
     Active Substance: TIOTROPIUM BROMIDE MONOHYDRATE
  41. LMX                                /00033401/ [Concomitant]

REACTIONS (3)
  - Haemoptysis [Recovering/Resolving]
  - Aspergillus infection [Recovering/Resolving]
  - Haemoptysis [Not Recovered/Not Resolved]

NARRATIVE: CASE EVENT DATE: 20171012
